FAERS Safety Report 6772923-X (Version None)
Quarter: 2010Q2

REPORT INFORMATION
  Report Type: 
  Country: None (occurrence: None)
  Receive Date: 20100616
  Receipt Date: 20100408
  Transmission Date: 20101027
  Serious: No
  Sender: FDA-Public Use
  Company Number: US-JNJFOC-20100402650

PATIENT
  Age: 45 Year
  Sex: Male

DRUGS (4)
  1. INVEGA [Suspect]
     Indication: BIPOLAR DISORDER
     Dosage: TREATMENT INITIATED APPROX. 12 TO 18 MONTHS AGO, DISCONTINUED IN JUN-2009.
     Route: 048
  2. LITHIUM [Concomitant]
     Indication: DRUG USE FOR UNKNOWN INDICATION
  3. LAMICTAL [Concomitant]
     Indication: DRUG USE FOR UNKNOWN INDICATION
  4. PROZAC [Concomitant]
     Indication: DEPRESSION

REACTIONS (1)
  - TREMOR [None]
